FAERS Safety Report 6291163-4 (Version None)
Quarter: 2009Q3

REPORT INFORMATION
  Report Type: 
  Country: None (occurrence: None)
  Receive Date: 20090730
  Receipt Date: 20090723
  Transmission Date: 20100115
  Serious: Yes (Hospitalization)
  Sender: FDA-Public Use
  Company Number: B0585394A

PATIENT
  Sex: Female

DRUGS (6)
  1. TELZIR [Suspect]
     Indication: HIV INFECTION
     Dosage: 1TAB TWICE PER DAY
     Route: 048
     Dates: start: 20050525
  2. NORVIR [Suspect]
     Indication: HIV INFECTION
     Dosage: 100MG TWICE PER DAY
     Route: 048
     Dates: start: 20050525
  3. EPIVIR [Concomitant]
     Indication: HIV INFECTION
     Route: 048
     Dates: start: 20050525
  4. VIREAD [Concomitant]
     Indication: HIV INFECTION
     Route: 048
     Dates: start: 20050525
  5. PROZAC [Concomitant]
     Route: 048
  6. LUTERAN [Concomitant]

REACTIONS (6)
  - ACUTE CORONARY SYNDROME [None]
  - CHEST PAIN [None]
  - CORONARY ARTERY STENOSIS [None]
  - ELECTROCARDIOGRAM ST SEGMENT DEPRESSION [None]
  - TROPONIN INCREASED [None]
  - VENTRICULAR HYPOKINESIA [None]
